FAERS Safety Report 8346647-1 (Version None)
Quarter: 2012Q2

REPORT INFORMATION
  Report Type: 
  Country: None (occurrence: None)
  Receive Date: 20120509
  Receipt Date: 20120505
  Transmission Date: 20120825
  Serious: Yes (Life-Threatening)
  Sender: FDA-Public Use
  Company Number: PHEH2012US009584

PATIENT

DRUGS (1)
  1. EXELON [Suspect]
     Route: 062

REACTIONS (1)
  - TERMINAL STATE [None]
